FAERS Safety Report 18112428 (Version 2)
Quarter: 2020Q3

REPORT INFORMATION
  Report Type: Report from Study
  Country: CA (occurrence: CA)
  Receive Date: 20200805
  Receipt Date: 20200915
  Transmission Date: 20201103
  Serious: Yes (Other)
  Sender: FDA-Public Use
  Company Number: NVSC2020CA217781

PATIENT
  Age: 49 Year
  Sex: Female

DRUGS (2)
  1. KISQALI [Suspect]
     Active Substance: RIBOCICLIB
     Indication: BREAST CANCER METASTATIC
     Dosage: UNK
     Route: 048
     Dates: start: 20200622
  2. KISQALI [Suspect]
     Active Substance: RIBOCICLIB
     Dosage: 600 MG, QD
     Route: 048
     Dates: start: 20200706

REACTIONS (6)
  - Malaise [Unknown]
  - Renal pain [Unknown]
  - Sleep disorder [Unknown]
  - Hepatic pain [Unknown]
  - Electrocardiogram QT interval abnormal [Unknown]
  - Painful respiration [Unknown]

NARRATIVE: CASE EVENT DATE: 20200708
